FAERS Safety Report 6562594-X (Version None)
Quarter: 2010Q1

REPORT INFORMATION
  Report Type: 
  Country: None (occurrence: None)
  Receive Date: 20100130
  Receipt Date: 20091120
  Transmission Date: 20100710
  Serious: No
  Sender: FDA-Public Use
  Company Number: US-ABBOTT-09P-163-0609959-00

PATIENT
  Sex: Female
  Weight: 86.26 kg

DRUGS (8)
  1. HUMIRA [Suspect]
     Indication: PSORIASIS
     Dates: start: 20090611
  2. HUMIRA [Suspect]
     Indication: PSORIASIS
     Dates: start: 20090708
  3. METFORMIN [Suspect]
     Indication: DIABETES MELLITUS
     Dates: start: 20090501
  4. GLIMEPIRIDE [Suspect]
     Indication: DIABETES MELLITUS
     Dosage: DAILY IN THE EVENING
     Dates: start: 20090501
  5. EXCEDRIN (MIGRAINE) [Concomitant]
     Indication: MIGRAINE
  6. NAPROXEN [Concomitant]
     Indication: BACK PAIN
  7. LOVAZA [Concomitant]
     Indication: CARDIAC DISORDER
  8. PIOGLITAZONE OR PLACEBO [Concomitant]
     Indication: DIABETES MELLITUS
     Dosage: 30/45 MG
     Dates: start: 20090622

REACTIONS (3)
  - INJECTION SITE HAEMATOMA [None]
  - INJECTION SITE PAIN [None]
  - VISION BLURRED [None]
